FAERS Safety Report 6020309-8 (Version None)
Quarter: 2008Q4

REPORT INFORMATION
  Report Type: 
  Country: None (occurrence: None)
  Receive Date: 20081226
  Receipt Date: 20081219
  Transmission Date: 20090506
  Serious: Yes (Hospitalization)
  Sender: FDA-Public Use
  Company Number: PHHO2008US15174

PATIENT
  Sex: Male

DRUGS (12)
  1. TASIGNA [Suspect]
     Indication: CHRONIC MYELOID LEUKAEMIA
     Dosage: 400 MG, BID
     Route: 048
     Dates: start: 20051130, end: 20051219
  2. TASIGNA [Suspect]
     Dosage: NO TREATMENT
     Dates: start: 20051220, end: 20051229
  3. TASIGNA [Suspect]
     Dosage: UNK
     Dates: start: 20051230, end: 20051230
  4. TASIGNA [Suspect]
     Dosage: NO TREATMENT
     Dates: start: 20051231, end: 20060112
  5. TASIGNA [Suspect]
     Dosage: 400 MG, BID
     Route: 048
     Dates: start: 20060113, end: 20060202
  6. TASIGNA [Suspect]
     Dosage: NO TREATMENT
     Dates: start: 20060202, end: 20060202
  7. TASIGNA [Suspect]
     Dosage: 400 MG, BID
     Route: 048
     Dates: start: 20060203
  8. TASIGNA [Suspect]
     Dosage: UNK
     Dates: end: 20060505
  9. PREDNISONE [Concomitant]
     Dosage: UNK
  10. LOTREL [Concomitant]
  11. ADVAIR DISKUS 250/50 [Concomitant]
  12. VALTREX [Concomitant]

REACTIONS (12)
  - CARDIAC MURMUR [None]
  - CARDIAC TAMPONADE [None]
  - ELECTROCARDIOGRAM PR SHORTENED [None]
  - ELECTROCARDIOGRAM ST SEGMENT ELEVATION [None]
  - MYALGIA [None]
  - MYOSITIS [None]
  - PERICARDITIS [None]
  - PLEURITIC PAIN [None]
  - RIGHT VENTRICULAR FAILURE [None]
  - SINUS ARREST [None]
  - VENTRICULAR TACHYCARDIA [None]
  - WHITE BLOOD CELL DISORDER [None]
